FAERS Safety Report 6019552-3 (Version None)
Quarter: 2008Q4

REPORT INFORMATION
  Report Type: 
  Country: None (occurrence: None)
  Receive Date: 20081224
  Receipt Date: 20081215
  Transmission Date: 20090506
  Serious: Yes (Hospitalization)
  Sender: FDA-Public Use
  Company Number: PHHY2008DE29578

PATIENT
  Sex: Female

DRUGS (1)
  1. LEPONEX [Suspect]
     Indication: PSYCHOTIC DISORDER
     Dosage: 175 MG/DAY
     Route: 048
     Dates: start: 20081028, end: 20081110

REACTIONS (9)
  - BLOOD BILIRUBIN INCREASED [None]
  - DERMATITIS ALLERGIC [None]
  - GENERAL PHYSICAL HEALTH DETERIORATION [None]
  - MECHANICAL VENTILATION [None]
  - PYREXIA [None]
  - RENAL FUNCTION TEST ABNORMAL [None]
  - RESPIRATORY FAILURE [None]
  - SEPSIS [None]
  - TRANSAMINASES INCREASED [None]
